FAERS Safety Report 6192218-5 (Version None)
Quarter: 2009Q2

REPORT INFORMATION
  Report Type: 
  Country: None (occurrence: None)
  Receive Date: 20090515
  Receipt Date: 20090430
  Transmission Date: 20091009
  Serious: Yes (Life-Threatening, Hospitalization)
  Sender: FDA-Public Use
  Company Number: RO-GENENTECH-282891

PATIENT
  Sex: Female

DRUGS (3)
  1. BLINDED BEVACIZUMAB [Suspect]
     Indication: BREAST CANCER
     Dosage: UNK
     Route: 042
     Dates: start: 20070126, end: 20090429
  2. DOCETAXEL [Suspect]
     Indication: BREAST CANCER
     Dosage: UNK
     Route: 042
     Dates: start: 20070126, end: 20090429
  3. BLINDED PLACEBO [Suspect]
     Indication: BREAST CANCER
     Dosage: UNK
     Route: 042
     Dates: start: 20070126, end: 20090429

REACTIONS (1)
  - PANCREATITIS NECROTISING [None]
